FAERS Safety Report 8612994-9 (Version None)
Quarter: 2012Q3

REPORT INFORMATION
  Report Type: 
  Country: None (occurrence: None)
  Receive Date: 20120822
  Receipt Date: 20120816
  Transmission Date: 20120928
  Serious: Yes (Death)
  Sender: FDA-Public Use
  Company Number: US-PFIZER INC-2012201949

PATIENT
  Age: 59 Year
  Sex: Female

DRUGS (1)
  1. REVATIO [Suspect]
     Indication: HEPATIC NEOPLASM MALIGNANT
     Dosage: TAKE THREE 20 MG TABLETS DAILY

REACTIONS (2)
  - DEATH [None]
  - OFF LABEL USE [None]
